FAERS Safety Report 11506408 (Version 1)
Quarter: 2015Q3

REPORT INFORMATION
  Report Type: Spontaneous
  Country: US (occurrence: US)
  Receive Date: 20150915
  Receipt Date: 20150915
  Transmission Date: 20151125
  Serious: No
  Sender: FDA-Public Use
  Company Number: US-ROCHE-768689

PATIENT
  Age: 55 Year
  Sex: Female

DRUGS (2)
  1. RIBASPHERE [Suspect]
     Active Substance: RIBAVIRIN
     Indication: HEPATITIS C
     Dosage: DIVIDED DOSES
     Route: 065
  2. PEGASYS [Suspect]
     Active Substance: PEGINTERFERON ALFA-2A
     Indication: HEPATITIS C
     Route: 065

REACTIONS (11)
  - Red blood cell count decreased [Unknown]
  - Appetite disorder [Unknown]
  - Anxiety [Unknown]
  - Palpitations [Unknown]
  - Alopecia [Unknown]
  - Pruritus [Unknown]
  - Weight decreased [Unknown]
  - Neutrophil count decreased [Unknown]
  - Dry skin [Unknown]
  - Fatigue [Unknown]
  - Blister [Unknown]

NARRATIVE: CASE EVENT DATE: 20101120
